FAERS Safety Report 7102156-9 (Version None)
Quarter: 2010Q4

REPORT INFORMATION
  Report Type: 
  Country: None (occurrence: None)
  Receive Date: 20101115
  Receipt Date: 20101102
  Transmission Date: 20110411
  Serious: Yes (Other)
  Sender: FDA-Public Use
  Company Number: IR-ROCHE-738781

PATIENT

DRUGS (1)
  1. OSELTAMIVIR [Suspect]
     Indication: H1N1 INFLUENZA
     Route: 064

REACTIONS (1)
  - INTRA-UTERINE DEATH [None]
